FAERS Safety Report 9047183 (Version 1)
Quarter: 2013Q1

REPORT INFORMATION
  Report Type: Report from Study
  Country: US (occurrence: US)
  Receive Date: 20130130
  Receipt Date: 20130130
  Transmission Date: 20140127
  Serious: No
  Sender: FDA-Public Use
  Company Number: US-ABBOTT-12P-163-0977860-00

PATIENT
  Age: 58 Year
  Sex: Female

DRUGS (13)
  1. HUMIRA [Suspect]
     Indication: PSORIATIC ARTHROPATHY
     Dates: start: 201206
  2. ATENOLOL [Concomitant]
     Indication: HYPERTENSION
     Dosage: DAILY
  3. HCTZ [Concomitant]
     Indication: HYPERTENSION
     Dosage: DAILY
  4. LOTREL [Concomitant]
     Indication: HYPERTENSION
     Dosage: 5/10 DAILY
  5. SYNTHYROID [Concomitant]
     Indication: THYROID DISORDER
     Dosage: DAILY
  6. RANTIDINE [Concomitant]
     Indication: GASTROOESOPHAGEAL REFLUX DISEASE
     Dosage: DAILY
  7. METHOTREXATE [Concomitant]
     Indication: ARTHRITIS
     Dosage: 8 PILLS WEEKLY
  8. MTX [Concomitant]
     Indication: PRODUCT USED FOR UNKNOWN INDICATION
     Dosage: DAILY
  9. ZOCOR [Concomitant]
     Indication: BLOOD CHOLESTEROL INCREASED
     Dosage: DAILY
  10. SINGULAIR [Concomitant]
     Indication: ASTHMA
     Dosage: DAILY
  11. GABAPENTIN [Concomitant]
     Indication: NERVE INJURY
  12. SERTRALINE [Concomitant]
     Indication: PANIC DISORDER
     Dosage: DAILY
  13. LORATADINE [Concomitant]
     Indication: HYPERSENSITIVITY
     Dosage: DAILY

REACTIONS (4)
  - Rhinorrhoea [Not Recovered/Not Resolved]
  - Sinusitis [Not Recovered/Not Resolved]
  - Headache [Not Recovered/Not Resolved]
  - Cough [Not Recovered/Not Resolved]
